FAERS Safety Report 7380423-1 (Version None)
Quarter: 2011Q1

REPORT INFORMATION
  Report Type: 
  Country: None (occurrence: None)
  Receive Date: 20110318
  Receipt Date: 20110308
  Transmission Date: 20110831
  Serious: Yes (Hospitalization, Other)
  Sender: FDA-Public Use
  Company Number: GB-ACCORD-008373

PATIENT
  Age: 83 Year
  Sex: Female

DRUGS (3)
  1. CO-AMOXICLAV(CO-AMOXICLAV) [Concomitant]
  2. CLARITHROMYCIN [Suspect]
     Indication: PNEUMONIA
  3. SIMVASTATIN [Suspect]
     Indication: HYPERLIPIDAEMIA
     Dosage: ORAL
     Route: 048

REACTIONS (4)
  - DRUG INTERACTION [None]
  - RHABDOMYOLYSIS [None]
  - HYPERCALCAEMIA [None]
  - DEHYDRATION [None]
